FAERS Safety Report 16403288 (Version 2)
Quarter: 2019Q3

REPORT INFORMATION
  Report Type: Spontaneous
  Country: FR (occurrence: FR)
  Receive Date: 20190607
  Receipt Date: 20190715
  Transmission Date: 20191004
  Serious: Yes (Other)
  Sender: FDA-Public Use
  Company Number: FR-ROCHE-2328852

PATIENT
  Age: 53 Year
  Sex: Female
  Weight: 68 kg

DRUGS (5)
  1. PREDNISONE. [Concomitant]
     Active Substance: PREDNISONE
     Indication: POLYCHONDRITIS
     Route: 048
     Dates: start: 201606
  2. METOJECT [Concomitant]
     Active Substance: METHOTREXATE SODIUM
     Indication: POLYCHONDRITIS
     Route: 058
     Dates: start: 201507
  3. FEMSEPT [Concomitant]
     Indication: MENOPAUSE
     Route: 062
     Dates: start: 201611
  4. ATACAND [Concomitant]
     Active Substance: CANDESARTAN CILEXETIL
     Indication: HYPERTENSION
     Route: 048
     Dates: start: 201612
  5. ROACTEMRA [Suspect]
     Active Substance: TOCILIZUMAB
     Indication: POLYCHONDRITIS
     Route: 042
     Dates: start: 20180810, end: 20181204

REACTIONS (4)
  - Insomnia [Recovered/Resolved]
  - Depressed mood [Recovered/Resolved]
  - Affective disorder [Recovered/Resolved]
  - Irritability [Recovered/Resolved]

NARRATIVE: CASE EVENT DATE: 201810
